FAERS Safety Report 16143101 (Version 1)
Quarter: 2019Q2

REPORT INFORMATION
  Report Type: Spontaneous
  Country: DE (occurrence: DE)
  Receive Date: 20190401
  Receipt Date: 20190401
  Transmission Date: 20190711
  Serious: Yes (Other)
  Sender: FDA-Public Use
  Company Number: DE-GLAXOSMITHKLINE-DE2019GSK057507

PATIENT
  Sex: Female

DRUGS (2)
  1. ICLUSIG [Interacting]
     Active Substance: PONATINIB
     Indication: PRODUCT USED FOR UNKNOWN INDICATION
     Dosage: 15 MG, UNK
     Route: 048
     Dates: start: 2016
  2. ELONTRIL [Suspect]
     Active Substance: BUPROPION HYDROCHLORIDE
     Indication: CHRONIC MYELOID LEUKAEMIA
     Dosage: UNK

REACTIONS (6)
  - Treatment noncompliance [Unknown]
  - Philadelphia chromosome positive [Unknown]
  - Off label use [Unknown]
  - Chronic myeloid leukaemia [Unknown]
  - Condition aggravated [Unknown]
  - Drug interaction [Unknown]
